FAERS Safety Report 19286707 (Version 15)
Quarter: 2022Q3

REPORT INFORMATION
  Report Type: Report from Study
  Country: US (occurrence: US)
  Receive Date: 20210522
  Receipt Date: 20220822
  Transmission Date: 20221026
  Serious: Yes (Other)
  Sender: FDA-Public Use
  Company Number: US-NOVARTISPH-NVSC2021US108679

PATIENT
  Sex: Female

DRUGS (3)
  1. COSENTYX [Suspect]
     Active Substance: SECUKINUMAB
     Indication: Psoriasis
     Dosage: 300 MG, QW
     Route: 058
     Dates: start: 202104
  2. COSENTYX [Suspect]
     Active Substance: SECUKINUMAB
     Indication: Psoriatic arthropathy
     Dosage: UNK
     Route: 058
  3. COSENTYX [Suspect]
     Active Substance: SECUKINUMAB
     Dosage: 300 MG, QMO
     Route: 058

REACTIONS (19)
  - Dementia [Unknown]
  - Injection site bruising [Unknown]
  - Asthenia [Unknown]
  - Swelling face [Unknown]
  - Erythema [Unknown]
  - Peripheral swelling [Unknown]
  - Facial pain [Not Recovered/Not Resolved]
  - Burning sensation [Recovering/Resolving]
  - Temporomandibular joint syndrome [Recovering/Resolving]
  - Injection site haemorrhage [Unknown]
  - Tooth loss [Unknown]
  - Accident [Unknown]
  - Movement disorder [Unknown]
  - Rebound effect [Unknown]
  - Psoriasis [Unknown]
  - Device defective [Unknown]
  - Product temperature excursion issue [Unknown]
  - Incorrect dose administered [Unknown]
  - Product dose omission issue [Unknown]
